FAERS Safety Report 5483901-5 (Version None)
Quarter: 2007Q4

REPORT INFORMATION
  Report Type: 
  Country: None (occurrence: None)
  Receive Date: 20071009
  Receipt Date: 20070927
  Transmission Date: 20080405
  Serious: No
  Sender: FDA-Public Use
  Company Number: 07H-028-0313280-00

PATIENT
  Age: 33 Year
  Sex: Female

DRUGS (7)
  1. POTASSIUM CHLORIDE [Suspect]
     Indication: DRUG USE FOR UNKNOWN INDICATION
     Dosage: 80 MMOL/1240ML, ONCE DAILY, INTRAVENOUS
     Route: 042
     Dates: start: 20070912, end: 20070913
  2. MORPHINE [Concomitant]
  3. DIAZEPAM [Concomitant]
  4. GENTAMICIN [Concomitant]
  5. PANTOPRAZOLE SODIUM [Concomitant]
  6. PHENYTOIN [Concomitant]
  7. TPN [Concomitant]

REACTIONS (5)
  - HYPERSENSITIVITY [None]
  - LIP SWELLING [None]
  - NAUSEA [None]
  - SWELLING FACE [None]
  - VOMITING [None]
